FAERS Safety Report 9508289 (Version 1)
Quarter: 2013Q3

REPORT INFORMATION
  Report Type: Spontaneous
  Country: CN (occurrence: CN)
  Receive Date: 20130909
  Receipt Date: 20130909
  Transmission Date: 20140515
  Serious: Yes (Other)
  Sender: FDA-Public Use
  Company Number: CN-B.I. PHARMACEUTICALS,INC./RIDGEFIELD-2013-BI-27784YA

PATIENT
  Sex: 0

DRUGS (2)
  1. TAMSULOSINA [Suspect]
     Route: 065
  2. CARDURA (DOXAZOSIN MESILATE) [Concomitant]

REACTIONS (1)
  - Oedema peripheral [Unknown]
